FAERS Safety Report 20545783 (Version 1)
Quarter: 2022Q1

REPORT INFORMATION
  Report Type: Spontaneous
  Country: DE (occurrence: DE)
  Receive Date: 20220303
  Receipt Date: 20220303
  Transmission Date: 20220424
  Serious: No
  Sender: FDA-Public Use
  Company Number: None

PATIENT
  Age: 74 Year
  Sex: Male

DRUGS (14)
  1. TAMSULOSIN HYDROCHLORIDE [Suspect]
     Active Substance: TAMSULOSIN HYDROCHLORIDE
     Indication: Prostate infection
     Dosage: 0.4 MG, QD (ONCE DAILY)
     Route: 065
  2. PROGRAF [Suspect]
     Active Substance: TACROLIMUS
     Indication: Transplant
     Dosage: 0.4 MG, QD (ONCE DAILY)
     Route: 065
  3. TACROLIMUS [Suspect]
     Active Substance: TACROLIMUS
     Indication: Product used for unknown indication
     Dosage: 1 MG, BID (TWICE DAILY)
     Route: 065
  4. TACROLIMUS [Suspect]
     Active Substance: TACROLIMUS
     Indication: Product used for unknown indication
     Dosage: 0.5 MG, BID (TWICE DAILY)
     Route: 065
  5. TACROLIMUS [Suspect]
     Active Substance: TACROLIMUS
     Indication: Product used for unknown indication
     Dosage: UNK UNK, UNKNOWN FREQ.
     Route: 065
  6. PROGRAF [Suspect]
     Active Substance: TACROLIMUS
     Indication: Transplant
     Dosage: 0.5 MG, BID (TWICE DAILY)
     Route: 065
  7. PROGRAF [Suspect]
     Active Substance: TACROLIMUS
     Indication: Transplant
     Dosage: 0.5 MG, BID (TWICE DAILY)
     Route: 065
  8. PROGRAF [Suspect]
     Active Substance: TACROLIMUS
     Indication: Transplant
     Dosage: 1 MG
     Route: 065
     Dates: end: 2018
  9. PROGRAF [Suspect]
     Active Substance: TACROLIMUS
     Indication: Transplant
     Dosage: 1 MG
     Route: 065
  10. PROGRAF [Suspect]
     Active Substance: TACROLIMUS
     Indication: Prostate infection
     Dosage: 0.4 MG, QD (ONCE DAILY)
     Route: 065
  11. PROGRAF [Suspect]
     Active Substance: TACROLIMUS
     Indication: Prostate infection
     Dosage: 0.5 MG, BID (TWICE DAILY)
     Route: 065
  12. PROGRAF [Suspect]
     Active Substance: TACROLIMUS
     Indication: Prostate infection
     Dosage: 0.5 MG, BID (TWICE DAILY)
     Route: 065
  13. PROGRAF [Suspect]
     Active Substance: TACROLIMUS
     Indication: Prostate infection
     Dosage: 1 MG
     Route: 065
     Dates: end: 2018
  14. PROGRAF [Suspect]
     Active Substance: TACROLIMUS
     Indication: Prostate infection
     Dosage: 1 MG
     Route: 065

REACTIONS (1)
  - Renal cyst [Unknown]

NARRATIVE: CASE EVENT DATE: 20211230
